FAERS Safety Report 7374297-2 (Version None)
Quarter: 2011Q1

REPORT INFORMATION
  Report Type: 
  Country: None (occurrence: None)
  Receive Date: 20110325
  Receipt Date: 20110228
  Transmission Date: 20110831
  Serious: No
  Sender: FDA-Public Use
  Company Number: US-B.I. PHARMACEUTICALS,INC./RIDGEFIELD-2011-BP-05656BP

PATIENT
  Sex: Male

DRUGS (5)
  1. VYTORIN [Concomitant]
     Indication: BLOOD CHOLESTEROL INCREASED
  2. ALLOPURINOL [Concomitant]
     Indication: GOUT
  3. PRADAXA [Suspect]
     Indication: ATRIAL FIBRILLATION
     Dosage: 150 MG
     Route: 048
     Dates: start: 20101201
  4. AMIODARONE HCL [Concomitant]
     Indication: ATRIAL FIBRILLATION
  5. HYZAAR [Concomitant]
     Indication: HYPERTENSION

REACTIONS (1)
  - ERYTHEMA [None]
